FAERS Safety Report 8462209-X (Version None)
Quarter: 2012Q2

REPORT INFORMATION
  Report Type: 
  Country: None (occurrence: None)
  Receive Date: 20120625
  Receipt Date: 20120620
  Transmission Date: 20120825
  Serious: Yes (Hospitalization)
  Sender: FDA-Public Use
  Company Number: PHEH2012US012313

PATIENT

DRUGS (1)
  1. RITALIN [Suspect]

REACTIONS (3)
  - HEAD INJURY [None]
  - LOSS OF CONSCIOUSNESS [None]
  - HAEMORRHAGE [None]
